FAERS Safety Report 21360900 (Version 2)
Quarter: 2022Q3

REPORT INFORMATION
  Report Type: Other
  Country: BR (occurrence: None)
  Receive Date: 20220921
  Receipt Date: 20220927
  Transmission Date: 20221026
  Serious: Yes (Hospitalization, Other)
  Sender: FDA-Public Use
  Company Number: BR-ROCHE-3179019

PATIENT
  Sex: Female
  Weight: 68 kg

DRUGS (3)
  1. ACTEMRA [Suspect]
     Active Substance: TOCILIZUMAB
     Indication: Rheumatoid arthritis
     Route: 042
     Dates: start: 20160701
  2. CALCIUM CARBONATE\CHOLECALCIFEROL [Concomitant]
     Active Substance: CALCIUM CARBONATE\CHOLECALCIFEROL
     Indication: Arthralgia
  3. NEOSIL [COLLAGEN SUPPLEMENT] [Concomitant]
     Indication: Alopecia

REACTIONS (10)
  - Blood cholesterol increased [Not Recovered/Not Resolved]
  - Diabetes mellitus [Not Recovered/Not Resolved]
  - Alopecia areata [Recovered/Resolved]
  - Influenza [Recovered/Resolved]
  - COVID-19 [Recovered/Resolved]
  - Musculoskeletal stiffness [Unknown]
  - Blood bilirubin increased [Unknown]
  - Jaundice [Unknown]
  - Fatigue [Unknown]
  - Dermatitis allergic [Not Recovered/Not Resolved]
